FAERS Safety Report 9674854 (Version 1)
Quarter: 2013Q4

REPORT INFORMATION
  Report Type: Spontaneous
  Country: SE (occurrence: SE)
  Receive Date: 20131107
  Receipt Date: 20131107
  Transmission Date: 20140711
  Serious: Yes (Other)
  Sender: FDA-Public Use
  Company Number: PHHY2013SE124567

PATIENT
  Age: 66 Year
  Sex: Male
  Weight: 100 kg

DRUGS (5)
  1. AFINITOR [Suspect]
     Indication: RENAL CELL CARCINOMA
     Dosage: 10 MG, PER DAY
     Route: 048
     Dates: start: 20130311, end: 20130416
  2. INSULIN [Concomitant]
  3. MORPHINE [Concomitant]
  4. ALVEDON [Concomitant]
  5. OMEPRAZOLE [Concomitant]

REACTIONS (4)
  - C-reactive protein increased [Recovering/Resolving]
  - Performance status decreased [Recovering/Resolving]
  - Lung infiltration [Recovering/Resolving]
  - Dyspnoea [Recovering/Resolving]
